FAERS Safety Report 10377598 (Version 1)
Quarter: 2014Q1

REPORT INFORMATION
  Report Type: Spontaneous
  Country: US (occurrence: None)
  Receive Date: 20140306
  Receipt Date: 20140306
  Transmission Date: 20141002
  Serious: Yes (Hospitalization)
  Sender: FDA-Public Use
  Company Number: 163-21880-13033712

PATIENT
  Age: 85 Year
  Sex: Male
  Weight: 69.85 kg

DRUGS (1)
  1. REVLIMID [Suspect]
     Indication: LYMPHOMA
     Dosage: 25MG, 1 IN 1D, PO
     Route: 048
     Dates: start: 20130101

REACTIONS (3)
  - Anaemia [None]
  - Hypotension [None]
  - Pain in extremity [None]
